FAERS Safety Report 5268690-1 (Version None)
Quarter: 2007Q1

REPORT INFORMATION
  Report Type: 
  Country: None (occurrence: None)
  Receive Date: 20061213
  Receipt Date: 20040907
  Transmission Date: 20070707
  Serious: Yes (Other)
  Sender: FDA-Public Use
  Company Number: 2004UW18863

PATIENT
  Age: 80 Year
  Sex: Female

DRUGS (4)
  1. IRESSA [Suspect]
     Indication: LUNG NEOPLASM MALIGNANT
     Dosage: 250 MG PO
     Route: 048
     Dates: start: 20040802
  2. VICODIN [Concomitant]
  3. COZAAR [Concomitant]
  4. FERROUS SULFATE TAB [Concomitant]

REACTIONS (2)
  - CHILLS [None]
  - TREMOR [None]
